FAERS Safety Report 6945902-7 (Version None)
Quarter: 2010Q3

REPORT INFORMATION
  Report Type: 
  Country: None (occurrence: None)
  Receive Date: 20100827
  Receipt Date: 20100823
  Transmission Date: 20110219
  Serious: Yes (Hospitalization)
  Sender: FDA-Public Use
  Company Number: PHHO2008US12368

PATIENT
  Sex: Male

DRUGS (19)
  1. CYCLOSPORINE [Suspect]
     Indication: RENAL TRANSPLANT
     Dosage: 375 MG, QD
     Route: 048
     Dates: start: 20060924
  2. CELLCEPT [Concomitant]
     Dosage: 1000 MG, UNK
     Dates: start: 20070810
  3. PREDNISONE [Concomitant]
     Dosage: 7.5 MG, UNK
  4. VITAMIN D [Concomitant]
  5. SEROQUEL [Concomitant]
  6. CLONIDINE [Concomitant]
  7. METOPROLOL [Concomitant]
  8. LOPID [Concomitant]
  9. LASIX [Concomitant]
  10. OMEGA [Concomitant]
  11. K-DUR [Concomitant]
  12. MULTI-VITAMIN [Concomitant]
  13. ZOLOFT [Concomitant]
  14. ASPIRIN [Concomitant]
  15. NEXIUM [Concomitant]
  16. LIPITOR [Concomitant]
  17. REGULAR INSULIN [Concomitant]
  18. HUMALOG [Concomitant]
  19. LANTUS [Concomitant]

REACTIONS (15)
  - CHEST DISCOMFORT [None]
  - CONTINUOUS POSITIVE AIRWAY PRESSURE [None]
  - COUGH [None]
  - DYSPNOEA [None]
  - HEADACHE [None]
  - LUNG DISORDER [None]
  - LUNG INFILTRATION [None]
  - MUSCULOSKELETAL PAIN [None]
  - NAUSEA [None]
  - PLEURAL EFFUSION [None]
  - PNEUMONIA [None]
  - PULMONARY HYPERTENSION [None]
  - PYREXIA [None]
  - SOMNOLENCE [None]
  - TRICUSPID VALVE INCOMPETENCE [None]
